FAERS Safety Report 15981150 (Version 1)
Quarter: 2019Q1

REPORT INFORMATION
  Report Type: Spontaneous
  Country: FR (occurrence: FR)
  Receive Date: 20190219
  Receipt Date: 20190219
  Transmission Date: 20190418
  Serious: Yes (Hospitalization)
  Sender: FDA-Public Use
  Company Number: FR-PFIZER INC-2006003907

PATIENT
  Age: 84 Year
  Sex: Female

DRUGS (11)
  1. TANAKAN [Suspect]
     Active Substance: GINKGO
     Indication: ILL-DEFINED DISORDER
     Dosage: 40 MG, 3X/DAY
     Route: 048
     Dates: end: 20051020
  2. RELVENE [Concomitant]
     Dosage: UNK
     Route: 065
     Dates: end: 20051020
  3. AMLOR [Suspect]
     Active Substance: AMLODIPINE BESYLATE
     Dosage: 1 DF, 1X/DAY
     Route: 048
     Dates: end: 20051020
  4. LECTIL [Concomitant]
     Active Substance: BETAHISTINE HYDROCHLORIDE
     Dosage: UNK
     Route: 065
     Dates: end: 20051020
  5. TRIMETAZIDINE HYDROCHLORIDE [Suspect]
     Active Substance: TRIMETAZIDINE DIHYDROCHLORIDE
     Indication: ILL-DEFINED DISORDER
     Dosage: 1 DF, 3X/DAY
     Route: 048
     Dates: end: 20051020
  6. EPHYNAL [Concomitant]
     Active Substance: .ALPHA.-TOCOPHEROL ACETATE
     Dosage: UNK
     Route: 065
     Dates: end: 20051020
  7. DEROXAT [Suspect]
     Active Substance: PAROXETINE HYDROCHLORIDE
     Indication: ILL-DEFINED DISORDER
     Dosage: 20 MG, 1X/DAY
     Route: 048
     Dates: end: 20051020
  8. TRIVASTAL [Suspect]
     Active Substance: PIRIBEDIL
     Indication: ILL-DEFINED DISORDER
     Dosage: 1 DF, 1X/DAY
     Route: 048
     Dates: end: 20051020
  9. RISPERDAL [Suspect]
     Active Substance: RISPERIDONE
     Indication: ILL-DEFINED DISORDER
     Dosage: 1.5 MG, 1X/DAY
     Route: 048
     Dates: end: 20051020
  10. STRESAM [Concomitant]
     Active Substance: ETIFOXINE
     Dosage: UNK
     Route: 065
     Dates: end: 20051020
  11. MEPRONIZINE [ACEPROMETAZINE;MEPROBAMATE] [Concomitant]
     Dosage: UNK
     Route: 065
     Dates: end: 20051020

REACTIONS (1)
  - Fall [Recovered/Resolved]

NARRATIVE: CASE EVENT DATE: 200510
